FAERS Safety Report 9416704 (Version 1)
Quarter: 2013Q3

REPORT INFORMATION
  Report Type: Spontaneous
  Country: JP (occurrence: None)
  Receive Date: 20130719
  Receipt Date: 20130719
  Transmission Date: 20140515
  Serious: Yes (Other)
  Sender: FDA-Public Use
  Company Number: TCI2013A04218

PATIENT
  Age: 76 Year
  Sex: Female

DRUGS (1)
  1. TAKEPRON [Suspect]
     Route: 048
     Dates: start: 201209, end: 201209

REACTIONS (1)
  - Drug-induced liver injury [None]
